FAERS Safety Report 23764947 (Version 6)
Quarter: 2024Q4

REPORT INFORMATION
  Report Type: Spontaneous
  Country: FR (occurrence: FR)
  Receive Date: 20240420
  Receipt Date: 20241014
  Transmission Date: 20250115
  Serious: Yes (Hospitalization, Disabling, Other)
  Sender: AUROBINDO
  Company Number: FR-AUROBINDO-AUR-APL-2024-018196

PATIENT
  Age: 39 Year
  Sex: Male
  Weight: 55.5 kg

DRUGS (3)
  1. DOXYCYCLINE HYCLATE [Suspect]
     Active Substance: DOXYCYCLINE HYCLATE
     Indication: Mycoplasma infection
     Dosage: 200 MILLIGRAM, DAILY
     Route: 048
  2. DOXYCYCLINE [Suspect]
     Active Substance: DOXYCYCLINE
     Indication: Mycoplasma infection
     Dosage: 200 MILLIGRAM, DAILY
     Route: 048
     Dates: start: 20230920, end: 20230923
  3. DOXYCYCLINE [Suspect]
     Active Substance: DOXYCYCLINE
     Indication: Urethritis mycoplasmal
     Dosage: UNK
     Route: 048
     Dates: start: 202308, end: 202308

REACTIONS (3)
  - Penile exfoliation [Recovered/Resolved]
  - Penile oedema [Recovered/Resolved]
  - Product prescribing issue [Unknown]

NARRATIVE: CASE EVENT DATE: 20230801
